FAERS Safety Report 6108549-0 (Version None)
Quarter: 2009Q1

REPORT INFORMATION
  Report Type: 
  Country: None (occurrence: None)
  Receive Date: 20090309
  Receipt Date: 20090224
  Transmission Date: 20090719
  Serious: Yes (Hospitalization)
  Sender: FDA-Public Use
  Company Number: PHHY2009DE07155

PATIENT
  Age: 54 Year
  Sex: Male

DRUGS (1)
  1. DICLOFENAC [Suspect]
     Indication: SCIATICA
     Dosage: 75 ML/DAY
     Route: 030
     Dates: start: 20080810, end: 20080810

REACTIONS (4)
  - ANAPHYLACTIC REACTION [None]
  - HYPERHIDROSIS [None]
  - PARAESTHESIA [None]
  - SHOCK [None]
